FAERS Safety Report 24749068 (Version 1)
Quarter: 2024Q4

REPORT INFORMATION
  Report Type: Spontaneous
  Country: US (occurrence: US)
  Receive Date: 20241218
  Receipt Date: 20241218
  Transmission Date: 20250115
  Serious: Yes (Hospitalization)
  Sender: ORGANON
  Company Number: US-MLMSERVICE-20241202-PI277962-00226-1

PATIENT
  Age: 64 Year
  Sex: Female

DRUGS (5)
  1. REMERON [Suspect]
     Active Substance: MIRTAZAPINE
     Indication: Decreased appetite
     Dosage: 7.5 MILLIGRAM, QD (ON A NIGHTLY SCHEDULE)
     Route: 048
  2. CEFTRIAXONE [Concomitant]
     Active Substance: CEFTRIAXONE
     Indication: Beta haemolytic streptococcal infection
     Dosage: 2 GRAM, QD
     Route: 042
  3. CEFTRIAXONE [Concomitant]
     Active Substance: CEFTRIAXONE
     Indication: Streptococcal bacteraemia
  4. METRONIDAZOLE [Concomitant]
     Active Substance: METRONIDAZOLE
     Indication: Beta haemolytic streptococcal infection
     Dosage: 500 MILLIGRAM, Q8H
     Route: 042
  5. METRONIDAZOLE [Concomitant]
     Active Substance: METRONIDAZOLE
     Indication: Streptococcal bacteraemia

REACTIONS (4)
  - Tachycardia [Recovered/Resolved]
  - Ventricular extrasystoles [Recovered/Resolved]
  - Supraventricular extrasystoles [Recovered/Resolved]
  - Product use in unapproved indication [Unknown]
